FAERS Safety Report 13973228 (Version 1)
Quarter: 2017Q3

REPORT INFORMATION
  Report Type: Spontaneous
  Country: GB (occurrence: GB)
  Receive Date: 20170914
  Receipt Date: 20170914
  Transmission Date: 20171128
  Serious: Yes (Disabling, Other)
  Sender: FDA-Public Use
  Company Number: GB-MYLANLABS-2017M1056262

PATIENT
  Age: 62 Year
  Sex: Female
  Weight: 85.72 kg

DRUGS (1)
  1. TAMOXIFEN [Suspect]
     Active Substance: TAMOXIFEN
     Indication: BREAST CANCER
     Route: 048
     Dates: end: 20130710

REACTIONS (6)
  - Dyspnoea [Recovering/Resolving]
  - Urine odour abnormal [Recovered/Resolved]
  - Stress urinary incontinence [Recovered/Resolved]
  - Muscle spasms [Not Recovered/Not Resolved]
  - Dry eye [Recovered/Resolved]
  - Pollakiuria [Recovered/Resolved]

NARRATIVE: CASE EVENT DATE: 2014
